FAERS Safety Report 5560191-6 (Version None)
Quarter: 2007Q4

REPORT INFORMATION
  Report Type: 
  Country: None (occurrence: None)
  Receive Date: 20071214
  Receipt Date: 20071102
  Transmission Date: 20080405
  Serious: Yes (Hospitalization)
  Sender: FDA-Public Use
  Company Number: US-ABBOTT-07P-163-0423425-00

PATIENT
  Sex: Female
  Weight: 152 kg

DRUGS (15)
  1. HUMIRA [Suspect]
     Indication: PSORIATIC ARTHROPATHY
     Route: 058
     Dates: start: 20070701, end: 20071001
  2. HUMIRA [Suspect]
     Dates: start: 20071101
  3. METOPROLOL TARTRATE [Concomitant]
     Indication: HYPERTENSION
  4. SERTRALINE [Concomitant]
     Indication: DEPRESSION
  5. VALSARTAN [Concomitant]
     Indication: HYPERTENSION
  6. HYDROCHLOROTHIAZIDE [Concomitant]
     Indication: HYPERTENSION
  7. METFORMIN HCL [Concomitant]
     Indication: DIABETES MELLITUS
  8. CLOPIDOGREL [Concomitant]
     Indication: CEREBROVASCULAR ACCIDENT PROPHYLAXIS
  9. ATORVASTATIN CALCIUM [Concomitant]
     Indication: BLOOD CHOLESTEROL INCREASED
  10. ESOMEPRAZOLE MAGNESIUM [Concomitant]
     Indication: GASTROOESOPHAGEAL REFLUX DISEASE
  11. CELECOXIB [Concomitant]
     Indication: PAIN
  12. CELECOXIB [Concomitant]
     Indication: FIBROMYALGIA
  13. MONTELUKAST SODIUM [Concomitant]
     Indication: SEASONAL ALLERGY
  14. MONTELUKAST SODIUM [Concomitant]
     Indication: ASTHMA
  15. ALBUTEROL [Concomitant]
     Indication: ASTHMA

REACTIONS (4)
  - INJECTION SITE ERYTHEMA [None]
  - INJECTION SITE PRURITUS [None]
  - INJECTION SITE SWELLING [None]
  - PNEUMONIA [None]
